FAERS Safety Report 6475037-1 (Version None)
Quarter: 2009Q4

REPORT INFORMATION
  Report Type: 
  Country: None (occurrence: None)
  Receive Date: 20091204
  Receipt Date: 20090311
  Transmission Date: 20100525
  Serious: Yes (Hospitalization)
  Sender: FDA-Public Use
  Company Number: DE-ELI_LILLY_AND_COMPANY-DE200903002853

PATIENT
  Age: 32 Year
  Sex: Female

DRUGS (4)
  1. ZYPREXA [Suspect]
     Indication: SCHIZOPHRENIA, PARANOID TYPE
     Dosage: 20 MG, DAILY (1/D)
     Route: 048
     Dates: start: 20081201, end: 20090107
  2. SERTRALIN [Concomitant]
     Dosage: 100 MG, UNK
     Route: 048
     Dates: start: 20081201, end: 20090121
  3. ABILIFY [Concomitant]
     Dosage: 30 MG, UNK
     Route: 048
     Dates: start: 20081201, end: 20090113
  4. ABILIFY [Concomitant]
     Dosage: 15 MG, UNK
     Dates: start: 20090114

REACTIONS (2)
  - OCULOGYRIC CRISIS [None]
  - RESTLESSNESS [None]
